FAERS Safety Report 8432823-6 (Version None)
Quarter: 2012Q2

REPORT INFORMATION
  Report Type: 
  Country: None (occurrence: None)
  Receive Date: 20120323
  Receipt Date: 20110714
  Transmission Date: 20120825
  Serious: Yes (Other)
  Sender: FDA-Public Use
  Company Number: 163-21880-11071623

PATIENT
  Age: 62 Year
  Sex: Female

DRUGS (3)
  1. GABAPENTIN [Concomitant]
  2. REVLIMID [Suspect]
     Indication: MYELOFIBROSIS
     Dosage: 1 IN D, PO
     Route: 048
     Dates: start: 20110303, end: 20110311
  3. LEVOTHYROID (LEVOTHYROXINE SODIUM) [Concomitant]

REACTIONS (3)
  - VISION BLURRED [None]
  - TREMOR [None]
  - HEADACHE [None]
